FAERS Safety Report 10008592 (Version 2)
Quarter: 2014Q1

REPORT INFORMATION
  Report Type: Spontaneous
  Country: US (occurrence: US)
  Receive Date: 20140312
  Receipt Date: 20140312
  Transmission Date: 20141002
  Serious: No
  Sender: FDA-Public Use
  Company Number: US-INCYTE CORPORATION-2012IN000115

PATIENT
  Sex: Male

DRUGS (6)
  1. JAKAFI [Suspect]
     Indication: MYELOFIBROSIS
     Dosage: 20 MG, BID
     Dates: start: 20120122
  2. ALEVE [Concomitant]
     Indication: NEURALGIA
     Dosage: UNK, PRN
  3. VITAMINS [Concomitant]
  4. OMEPRAZOLE [Concomitant]
  5. TOPROL XL [Concomitant]
  6. FINASTERIDE [Concomitant]

REACTIONS (1)
  - Pain in extremity [Unknown]
